FAERS Safety Report 8178685-6 (Version None)
Quarter: 2012Q1

REPORT INFORMATION
  Report Type: 
  Country: None (occurrence: None)
  Receive Date: 20120301
  Receipt Date: 20120221
  Transmission Date: 20120608
  Serious: Yes (Other)
  Sender: FDA-Public Use
  Company Number: US-ASTRAZENECA-2011SE28852

PATIENT
  Age: 56 Year
  Sex: Male

DRUGS (6)
  1. SEROQUEL [Suspect]
     Indication: BIPOLAR DISORDER
     Route: 048
  2. SEROQUEL [Suspect]
     Route: 048
  3. LAMICTAL [Concomitant]
  4. ZYPREXA [Concomitant]
  5. LITHIUM CARBONATE [Concomitant]
  6. SEROQUEL [Suspect]
     Route: 048

REACTIONS (8)
  - ANXIETY [None]
  - PHYSICAL DISABILITY [None]
  - TACHYPHRENIA [None]
  - DRUG DOSE OMISSION [None]
  - BRAIN NEOPLASM [None]
  - ROAD TRAFFIC ACCIDENT [None]
  - MONOPLEGIA [None]
  - INSOMNIA [None]
